FAERS Safety Report 11290626 (Version 1)
Quarter: 2015Q3

REPORT INFORMATION
  Report Type: Spontaneous
  Country: IT (occurrence: None)
  Receive Date: 20150720
  Receipt Date: 20150720
  Transmission Date: 20151125
  Serious: Yes (Death)
  Sender: FDA-Public Use
  Company Number: KAD201507-002239

PATIENT
  Age: 71 Year
  Sex: Male

DRUGS (2)
  1. RIBAVIRIN (RIBAVIRIN) [Suspect]
     Active Substance: RIBAVIRIN
     Indication: HEPATITIS C
     Route: 048
     Dates: start: 20150328, end: 20150705
  2. SOFOSBUVIR (SOFOSBUVIR) [Suspect]
     Active Substance: SOFOSBUVIR
     Indication: HEPATITIS C
     Route: 048

REACTIONS (6)
  - Intestinal infarction [None]
  - Hyperpyrexia [None]
  - Diarrhoea [None]
  - Abdominal pain [None]
  - Confusional state [None]
  - Fatigue [None]

NARRATIVE: CASE EVENT DATE: 20150705
